FAERS Safety Report 6557138-2 (Version None)
Quarter: 2010Q1

REPORT INFORMATION
  Report Type: 
  Country: None (occurrence: None)
  Receive Date: 20100126
  Receipt Date: 20100115
  Transmission Date: 20100710
  Serious: Yes (Death)
  Sender: FDA-Public Use
  Company Number: 100122-0000088

PATIENT
  Sex: Female

DRUGS (3)
  1. SABRIL [Suspect]
     Indication: DRUG USE FOR UNKNOWN INDICATION
     Dosage: 4 ML; BID; PO, 8 ML; BID; PO, 12 ML; BID; PO
     Route: 048
  2. SABRIL [Suspect]
     Indication: DRUG USE FOR UNKNOWN INDICATION
     Dosage: 4 ML; BID; PO, 8 ML; BID; PO, 12 ML; BID; PO
     Route: 048
  3. SABRIL [Suspect]
     Indication: DRUG USE FOR UNKNOWN INDICATION
     Dosage: 4 ML; BID; PO, 8 ML; BID; PO, 12 ML; BID; PO
     Route: 048

REACTIONS (1)
  - DEATH [None]
